FAERS Safety Report 11078266 (Version 4)
Quarter: 2015Q3

REPORT INFORMATION
  Report Type: Report from Study
  Country: DE (occurrence: DE)
  Receive Date: 20150430
  Receipt Date: 20150916
  Transmission Date: 20151125
  Serious: Yes (Hospitalization, Other)
  Sender: FDA-Public Use
  Company Number: PHHY2015DE018827

PATIENT
  Age: 37 Year
  Sex: Female

DRUGS (1)
  1. VOTUBIA [Suspect]
     Active Substance: EVEROLIMUS
     Indication: TUBEROUS SCLEROSIS
     Dosage: 5 MG, QD
     Route: 048

REACTIONS (9)
  - Diarrhoea [Recovered/Resolved]
  - Infection [Unknown]
  - Headache [Recovered/Resolved]
  - Gastroenteritis [Recovered/Resolved]
  - Cough [Recovered/Resolved]
  - Escherichia infection [Recovered/Resolved]
  - General physical health deterioration [Recovered/Resolved]
  - Pyrexia [Recovered/Resolved]
  - Hepatitis B [Unknown]

NARRATIVE: CASE EVENT DATE: 20141220
